FAERS Safety Report 14063538 (Version 1)
Quarter: 2017Q4

REPORT INFORMATION
  Report Type: Spontaneous
  Country: FI (occurrence: FI)
  Receive Date: 20171009
  Receipt Date: 20171009
  Transmission Date: 20180321
  Serious: Yes (Other)
  Sender: FDA-Public Use
  Company Number: FI-IGSA-SR10005322

PATIENT
  Age: 66 Year
  Sex: Male
  Weight: 95 kg

DRUGS (9)
  1. LINATIL [Concomitant]
     Active Substance: ENALAPRIL MALEATE
     Dosage: 20 MG, QD
  2. ACLASTA [Concomitant]
     Active Substance: ZOLEDRONIC ACID
     Dosage: 5 MG, UNK
  3. PRIMASPAN [Concomitant]
     Active Substance: ASPIRIN
     Dosage: 100 MG, QD
  4. FLUTIFORM [Concomitant]
     Active Substance: FLUTICASONE PROPIONATE\FORMOTEROL FUMARATE
     Indication: ASTHMA
     Dosage: UNK
  5. ASACOL [Concomitant]
     Active Substance: MESALAMINE
     Dosage: 3200 MG, QD
  6. HISTEC [Concomitant]
     Active Substance: CETIRIZINE HYDROCHLORIDE
     Indication: PREMEDICATION
     Dosage: 10 MG, UNK
     Route: 048
     Dates: start: 20170526, end: 20170526
  7. PANADOL [Concomitant]
     Active Substance: ACETAMINOPHEN
     Indication: PREMEDICATION
     Dosage: 1 G, UNK
     Dates: start: 20170526, end: 20170526
  8. GAMUNEX [Suspect]
     Active Substance: HUMAN IMMUNOGLOBULIN G
     Indication: IMMUNODEFICIENCY COMMON VARIABLE
     Dosage: 50 G, SINGLE
     Route: 042
     Dates: start: 20170526, end: 20170526
  9. PREDNISOLON                        /00016201/ [Concomitant]
     Active Substance: PREDNISOLONE
     Dosage: 20 MG, QD

REACTIONS (9)
  - Rhinitis allergic [Recovering/Resolving]
  - Dyspnoea [Recovered/Resolved]
  - Pain [Recovered/Resolved]
  - Dysphagia [Recovered/Resolved]
  - Myalgia [Recovered/Resolved]
  - Oropharyngeal pain [Recovered/Resolved]
  - Throat tightness [Recovered/Resolved]
  - Chills [Recovered/Resolved]
  - Cough [Recovered/Resolved]

NARRATIVE: CASE EVENT DATE: 20170526
